FAERS Safety Report 25307665 (Version 1)
Quarter: 2025Q2

REPORT INFORMATION
  Report Type: Spontaneous
  Country: US (occurrence: US)
  Receive Date: 20250513
  Receipt Date: 20250513
  Transmission Date: 20250717
  Serious: No
  Sender: Kenvue
  Company Number: US-KENVUE-20250502242

PATIENT
  Age: 84 Year
  Sex: Female

DRUGS (1)
  1. TYLENOL 8 HR ARTHRITIS PAIN [Suspect]
     Active Substance: ACETAMINOPHEN
     Indication: Arthritis
     Route: 065
     Dates: start: 20250423

REACTIONS (5)
  - Feeling abnormal [Recovering/Resolving]
  - Illness [Recovering/Resolving]
  - Adverse event [Recovering/Resolving]
  - Dizziness [Recovering/Resolving]
  - Incorrect dose administered [Unknown]

NARRATIVE: CASE EVENT DATE: 20250423
